FAERS Safety Report 4283597-4 (Version None)
Quarter: 2004Q1

REPORT INFORMATION
  Report Type: 
  Country: None (occurrence: None)
  Receive Date: 20040202
  Receipt Date: 20040122
  Transmission Date: 20041129
  Serious: Yes (Death, Hospitalization)
  Sender: FDA-Public Use
  Company Number: DE-GLAXOSMITHKLINE-B0321598A

PATIENT
  Age: 86 Year
  Sex: Female

DRUGS (3)
  1. CARVEDILOL [Suspect]
     Dosage: 6.25MG THREE TIMES PER DAY
     Route: 048
     Dates: start: 20030711, end: 20030909
  2. UNAT COR [Concomitant]
     Dates: start: 20030630, end: 20030909
  3. LORZAAR [Concomitant]
     Dates: start: 20030630, end: 20030909

REACTIONS (1)
  - RIGHT VENTRICULAR FAILURE [None]
